FAERS Safety Report 9098320 (Version 2)
Quarter: 2014Q4

REPORT INFORMATION
  Report Type: Spontaneous
  Country: US (occurrence: US)
  Receive Date: 20130213
  Receipt Date: 20141031
  Transmission Date: 20150529
  Serious: Yes (Disabling, Other)
  Sender: FDA-Public Use
  Company Number: CHPA2013US001565

PATIENT
  Age: 82 Year
  Sex: Female

DRUGS (5)
  1. ALEVE [Concomitant]
     Active Substance: NAPROXEN SODIUM
     Dosage: UNK
     Dates: start: 20130112
  2. VOLTAREN [Suspect]
     Active Substance: DICLOFENAC SODIUM
     Indication: ARTHRALGIA
  3. VOLTAREN [Suspect]
     Active Substance: DICLOFENAC SODIUM
     Indication: MUSCULOSKELETAL PAIN
     Dosage: 2 LIGHT APPLICATIONS, BID
     Route: 061
     Dates: start: 201212
  4. BENGAY                             /00735901/ [Concomitant]
  5. VOLTAREN [Suspect]
     Active Substance: DICLOFENAC SODIUM
     Indication: OFF LABEL USE

REACTIONS (8)
  - Pain [Unknown]
  - Vomiting [Unknown]
  - Wrong technique in drug usage process [Unknown]
  - Mobility decreased [Unknown]
  - Drug administered at inappropriate site [Unknown]
  - Panic reaction [Unknown]
  - Dysstasia [Unknown]
  - Myalgia [Unknown]

NARRATIVE: CASE EVENT DATE: 201212
